FAERS Safety Report 14430618 (Version 1)
Quarter: 2018Q1

REPORT INFORMATION
  Report Type: Spontaneous
  Country: US (occurrence: US)
  Receive Date: 20180123
  Receipt Date: 20180123
  Transmission Date: 20180509
  Serious: Yes (Death)
  Sender: FDA-Public Use
  Company Number: None

PATIENT
  Age: 63 Year
  Sex: Female

DRUGS (11)
  1. ATENOLOL. [Concomitant]
     Active Substance: ATENOLOL
  2. NITROGLYCERINE SUB [Concomitant]
  3. METHYLPRED [Concomitant]
     Active Substance: METHYLPREDNISOLONE
  4. MELOXICAM. [Concomitant]
     Active Substance: MELOXICAM
  5. VENTOLIN [Concomitant]
     Active Substance: ALBUTEROL SULFATE
  6. PRAVASTATIN. [Concomitant]
     Active Substance: PRAVASTATIN
  7. CEPHALEXIN. [Concomitant]
     Active Substance: CEPHALEXIN
  8. ANORO ELLIPTA [Concomitant]
     Active Substance: UMECLIDINIUM BROMIDE\VILANTEROL TRIFENATATE
  9. LEVOTHYROXINE. [Concomitant]
     Active Substance: LEVOTHYROXINE
  10. TREMFYA [Suspect]
     Active Substance: GUSELKUMAB
     Indication: PSORIASIS
     Dosage: OTHER FREQUENCY:WK 0+8, THEN Q8 WK;?
     Route: 058
     Dates: start: 20180112
  11. PULMICORT TURBUHALER [Concomitant]
     Active Substance: BUDESONIDE

REACTIONS (1)
  - Death [None]

NARRATIVE: CASE EVENT DATE: 20180113
